FAERS Safety Report 12823213 (Version 1)
Quarter: 2016Q4

REPORT INFORMATION
  Report Type: Spontaneous
  Country: MA (occurrence: MA)
  Receive Date: 20161007
  Receipt Date: 20161007
  Transmission Date: 20170207
  Serious: Yes (Other)
  Sender: FDA-Public Use
  Company Number: MA-CELGENEUS-MAR-2016096190

PATIENT

DRUGS (1)
  1. THALIDOMIDE [Suspect]
     Active Substance: THALIDOMIDE
     Indication: JUVENILE IDIOPATHIC ARTHRITIS
     Route: 048

REACTIONS (8)
  - Cataract [Unknown]
  - Osteoporosis [Unknown]
  - Disease recurrence [Unknown]
  - Body height below normal [Unknown]
  - Cushingoid [Unknown]
  - Histiocytosis haematophagic [Unknown]
  - Joint destruction [Unknown]
  - Infection [Unknown]
